FAERS Safety Report 21377421 (Version 1)
Quarter: 2022Q3

REPORT INFORMATION
  Report Type: Spontaneous
  Country: US (occurrence: US)
  Receive Date: 20220926
  Receipt Date: 20220926
  Transmission Date: 20221027
  Serious: No
  Sender: FDA-Public Use
  Company Number: US-GILEAD-2022-0598603

PATIENT
  Age: 28 Year
  Sex: Male

DRUGS (3)
  1. BIKTARVY [Suspect]
     Active Substance: BICTEGRAVIR SODIUM\EMTRICITABINE\TENOFOVIR ALAFENAMIDE FUMARATE
     Indication: HIV infection
     Route: 065
  2. FISH OIL [Concomitant]
     Active Substance: FISH OIL
  3. ASHWAGANDHA [WITHANIA SOMNIFERA ROOT] [Concomitant]

REACTIONS (2)
  - Abnormal dreams [Unknown]
  - Fatigue [Not Recovered/Not Resolved]
